FAERS Safety Report 10372624 (Version 1)
Quarter: 2014Q3

REPORT INFORMATION
  Report Type: Report from Study
  Country: US (occurrence: US)
  Receive Date: 20140808
  Receipt Date: 20140808
  Transmission Date: 20150326
  Serious: Yes (Hospitalization, Other)
  Sender: FDA-Public Use
  Company Number: GXBR2014US001802

PATIENT
  Age: 57 Year
  Sex: Male
  Weight: 116.1 kg

DRUGS (8)
  1. METOPROLOL [Concomitant]
     Active Substance: METOPROLOL
     Dosage: UNK DF, UNK
  2. ALLOPURINOL. [Concomitant]
     Active Substance: ALLOPURINOL
     Dosage: UNK DF, UNK
  3. ASA [Concomitant]
     Active Substance: ASPIRIN
     Dosage: UNK DF, UNK
  4. VITAMIN D [Concomitant]
     Active Substance: CHOLECALCIFEROL
     Dosage: UNK DF, UNK
  5. ENOXAPARIN SODIUM. [Suspect]
     Active Substance: ENOXAPARIN SODIUM
     Indication: PULMONARY EMBOLISM
     Dosage: 100-200 MG, BID
     Route: 058
     Dates: start: 201406, end: 20140724
  6. VYTORIN [Concomitant]
     Active Substance: EZETIMIBE\SIMVASTATIN
     Dosage: UNK DF, UNK
  7. JANUVIA [Concomitant]
     Active Substance: SITAGLIPTIN PHOSPHATE
     Dosage: UNK DF, UNK
  8. AMLODIPINE [Concomitant]
     Active Substance: AMLODIPINE BESYLATE
     Dosage: UNK DF, UNK

REACTIONS (2)
  - Metastases to central nervous system [Not Recovered/Not Resolved]
  - Tumour haemorrhage [Not Recovered/Not Resolved]

NARRATIVE: CASE EVENT DATE: 20140724
